FAERS Safety Report 11133315 (Version 1)
Quarter: 2015Q2

REPORT INFORMATION
  Report Type: Spontaneous
  Country: US (occurrence: US)
  Receive Date: 20150522
  Receipt Date: 20150522
  Transmission Date: 20150821
  Serious: Yes (Other)
  Sender: FDA-Public Use
  Company Number: US-BAXTER-2015BAX027062

PATIENT
  Age: 39 Year
  Sex: Female

DRUGS (2)
  1. SEVOFLURANE, USP [Suspect]
     Active Substance: SEVOFLURANE
     Indication: OFF LABEL USE
     Route: 055
     Dates: start: 20140804, end: 20140804
  2. SEVOFLURANE, USP [Suspect]
     Active Substance: SEVOFLURANE
     Indication: OFF LABEL USE

REACTIONS (2)
  - Suicidal ideation [Unknown]
  - Loss of consciousness [Unknown]

NARRATIVE: CASE EVENT DATE: 20140804
